FAERS Safety Report 9144067 (Version 1)
Quarter: 2013Q1

REPORT INFORMATION
  Report Type: Spontaneous
  Country: US (occurrence: US)
  Receive Date: 20130306
  Receipt Date: 20130306
  Transmission Date: 20140127
  Serious: Yes (Hospitalization)
  Sender: FDA-Public Use
  Company Number: US-GLAXOSMITHKLINE-A1014182A

PATIENT
  Age: 75 Year
  Sex: Female

DRUGS (2)
  1. TOPOTECAN [Suspect]
     Indication: METASTASES TO OVARY
     Dosage: 5.15MG CYCLIC
     Route: 042
     Dates: start: 20130124
  2. AVASTIN (BEVACIZUMAB) [Concomitant]

REACTIONS (6)
  - Ascites [Unknown]
  - Diarrhoea [Unknown]
  - Colitis [Unknown]
  - Constipation [Unknown]
  - Abdominal wall disorder [Unknown]
  - Gastrointestinal sounds abnormal [Unknown]
